FAERS Safety Report 24666396 (Version 1)
Quarter: 2024Q4

REPORT INFORMATION
  Report Type: Spontaneous
  Country: GB (occurrence: GB)
  Receive Date: 20241126
  Receipt Date: 20241126
  Transmission Date: 20250114
  Serious: Yes (Other)
  Sender: REGENERON
  Company Number: GB-REGENERON PHARMACEUTICALS, INC.-2024-160903

PATIENT
  Age: 91 Year
  Sex: Male

DRUGS (1)
  1. LIBTAYO [Suspect]
     Active Substance: CEMIPLIMAB-RWLC
     Indication: Squamous cell carcinoma of skin
     Dosage: UNK
     Route: 065

REACTIONS (2)
  - Capillary leak syndrome [Recovered/Resolved]
  - Oedema peripheral [Unknown]
